FAERS Safety Report 16897350 (Version 6)
Quarter: 2020Q2

REPORT INFORMATION
  Report Type: Spontaneous
  Country: PL (occurrence: PL)
  Receive Date: 20191009
  Receipt Date: 20200623
  Transmission Date: 20200713
  Serious: Yes (Death, Life-Threatening, Other)
  Sender: FDA-Public Use
  Company Number: PL-ROCHE-2422614

PATIENT
  Age: 51 Year
  Sex: Female

DRUGS (9)
  1. PACLITAXEL. [Interacting]
     Active Substance: PACLITAXEL
     Indication: BREAST CANCER
     Route: 065
     Dates: start: 201705, end: 201707
  2. VINORELBINE [Interacting]
     Active Substance: VINORELBINE TARTRATE
     Indication: BREAST CANCER
     Route: 065
     Dates: start: 201710, end: 201804
  3. CAPECITABINE. [Suspect]
     Active Substance: CAPECITABINE
     Indication: BREAST CANCER
     Route: 065
     Dates: start: 201707
  4. LETROZOLE. [Interacting]
     Active Substance: LETROZOLE
     Indication: BREAST CANCER
  5. LETROZOLE. [Interacting]
     Active Substance: LETROZOLE
     Indication: HORMONE THERAPY
     Route: 065
  6. TAMOXIFEN [Interacting]
     Active Substance: TAMOXIFEN
     Indication: BREAST CANCER
     Route: 065
  7. PACLITAXEL. [Interacting]
     Active Substance: PACLITAXEL
     Indication: CHRONIC MYELOID LEUKAEMIA
     Route: 065
  8. IMATINIB. [Interacting]
     Active Substance: IMATINIB MESYLATE
     Indication: CHRONIC MYELOID LEUKAEMIA
     Route: 065
     Dates: start: 201601, end: 201609
  9. TAMOXIFEN [Interacting]
     Active Substance: TAMOXIFEN
     Indication: HORMONE THERAPY

REACTIONS (12)
  - Disease progression [Fatal]
  - Polyneuropathy [Fatal]
  - Anaemia [Fatal]
  - Malignant neoplasm progression [Fatal]
  - Drug interaction [Fatal]
  - Therapy partial responder [Unknown]
  - Drug ineffective [Unknown]
  - Thrombocytosis [Fatal]
  - Breast cancer [Fatal]
  - Thrombocytopenia [Fatal]
  - Second primary malignancy [Recovering/Resolving]
  - Chronic myeloid leukaemia [Fatal]

NARRATIVE: CASE EVENT DATE: 201601
